FAERS Safety Report 6116648-2 (Version None)
Quarter: 2009Q1

REPORT INFORMATION
  Report Type: 
  Country: None (occurrence: None)
  Receive Date: 20090314
  Receipt Date: 20081219
  Transmission Date: 20090719
  Serious: No
  Sender: FDA-Public Use
  Company Number: US-ABBOTT-08P-163-0494399-00

PATIENT
  Sex: Female
  Weight: 61.29 kg

DRUGS (5)
  1. HUMIRA [Suspect]
     Indication: CROHN'S DISEASE
  2. NORVASC [Concomitant]
     Indication: HYPERTENSION
  3. FOSAMAX [Concomitant]
     Indication: OSTEOPENIA
  4. ALLEGRA D 24 HOUR [Concomitant]
     Indication: HYPERSENSITIVITY
  5. SYNTHROID [Concomitant]
     Indication: HYPOTHYROIDISM

REACTIONS (3)
  - CROHN'S DISEASE [None]
  - DRUG DELIVERY SYSTEM MALFUNCTION [None]
  - INCORRECT DOSE ADMINISTERED [None]
